FAERS Safety Report 16544875 (Version 2)
Quarter: 2019Q3

REPORT INFORMATION
  Report Type: Spontaneous
  Country: US (occurrence: US)
  Receive Date: 20190709
  Receipt Date: 20190902
  Transmission Date: 20191004
  Serious: Yes (Hospitalization, Other)
  Sender: FDA-Public Use
  Company Number: US-JNJFOC-20190703308

PATIENT
  Age: 59 Year
  Sex: Female
  Weight: 74.91 kg

DRUGS (14)
  1. BUDESONIDE. [Concomitant]
     Active Substance: BUDESONIDE
  2. ZANTAC [Concomitant]
     Active Substance: RANITIDINE HYDROCHLORIDE
     Indication: DYSPEPSIA
     Dosage: AS NEEDED
     Route: 048
  3. HYDROCODONE [Concomitant]
     Active Substance: HYDROCODONE
     Dosage: AS NEEDED
     Route: 048
  4. REMICADE [Suspect]
     Active Substance: INFLIXIMAB
     Indication: CROHN^S DISEASE
     Route: 042
     Dates: start: 199811, end: 20180129
  5. RETINOL [Concomitant]
     Active Substance: RETINOL
     Indication: MALABSORPTION
     Route: 048
  6. ZINC. [Concomitant]
     Active Substance: ZINC
     Indication: MALABSORPTION
     Route: 048
  7. TYLENOL [Concomitant]
     Active Substance: ACETAMINOPHEN
     Indication: PREMEDICATION
     Route: 048
     Dates: start: 1998, end: 201801
  8. VITAMIN B12 [Concomitant]
     Active Substance: CYANOCOBALAMIN
     Indication: MALABSORPTION
     Dosage: EVERY TWO TO FOUR WEEKS
  9. HUMIRA [Concomitant]
     Active Substance: ADALIMUMAB
     Indication: CROHN^S DISEASE
     Route: 058
  10. PREDNISONE. [Concomitant]
     Active Substance: PREDNISONE
     Dosage: AS NEEDED
     Route: 048
  11. LUTEIN                             /01638501/ [Concomitant]
     Active Substance: LUTEIN
     Indication: MALABSORPTION
     Route: 048
  12. BENADRYL [Concomitant]
     Active Substance: DIPHENHYDRAMINE HYDROCHLORIDE
     Indication: PREMEDICATION
     Route: 048
     Dates: start: 1998, end: 201801
  13. EXCEDRIN MIGRAINE [Concomitant]
     Active Substance: ACETAMINOPHEN\ASPIRIN\CAFFEINE
     Indication: MIGRAINE
     Dosage: AS NEEDED
     Route: 048
  14. VITAMIN D                          /00107901/ [Concomitant]
     Active Substance: ERGOCALCIFEROL
     Indication: MALABSORPTION
     Route: 048

REACTIONS (9)
  - Crohn^s disease [Recovered/Resolved]
  - Drug hypersensitivity [Unknown]
  - Product use issue [Unknown]
  - Infusion related reaction [Unknown]
  - Herpes zoster [Unknown]
  - Oral surgery [Unknown]
  - Intestinal resection [Unknown]
  - Body height decreased [Unknown]
  - Off label use [Unknown]

NARRATIVE: CASE EVENT DATE: 2003
